FAERS Safety Report 21119724 (Version 2)
Quarter: 2022Q3

REPORT INFORMATION
  Report Type: Spontaneous
  Country: BR (occurrence: BR)
  Receive Date: 20220722
  Receipt Date: 20220805
  Transmission Date: 20221026
  Serious: Yes (Other)
  Sender: FDA-Public Use
  Company Number: BR-009507513-2206BRA005441

PATIENT
  Sex: Female

DRUGS (7)
  1. JANUVIA [Suspect]
     Active Substance: SITAGLIPTIN PHOSPHATE
     Indication: Type 1 diabetes mellitus
     Dosage: 1 TABLET (50 MG) DAILY IN THE MORNING
     Route: 048
     Dates: start: 202201
  2. JANUVIA [Suspect]
     Active Substance: SITAGLIPTIN PHOSPHATE
     Dosage: 50 MILLIGRAM
     Route: 048
  3. NPH INSULIN [Concomitant]
     Active Substance: INSULIN BEEF
     Indication: Type 1 diabetes mellitus
     Dosage: 44 IU IN THE MORNING
     Dates: start: 202201
  4. NPH INSULIN [Concomitant]
     Active Substance: INSULIN BEEF
     Dosage: 33 IU, ONCE DAILY
     Dates: start: 202201
  5. TAPAZOL [THIAMAZOLE] [Concomitant]
     Indication: Hypothyroidism
     Dosage: DAILY DOSAGE: 2 TABLETS, ONE OF THEM IN THE MORNING (1 TABLET TWICE DAILY [BID])
     Route: 048
     Dates: start: 2021
  6. TAPAZOL [THIAMAZOLE] [Concomitant]
     Indication: Nodule
  7. LINAGLIPTIN [Concomitant]
     Active Substance: LINAGLIPTIN
     Indication: Type 1 diabetes mellitus

REACTIONS (9)
  - Diabetes mellitus inadequate control [Unknown]
  - Visual impairment [Unknown]
  - Hyperphagia [Unknown]
  - Thyroid disorder [Unknown]
  - Nervousness [Not Recovered/Not Resolved]
  - Oscillopsia [Unknown]
  - Product packaging quantity issue [Unknown]
  - Poor quality product administered [Unknown]
  - Product use in unapproved indication [Unknown]

NARRATIVE: CASE EVENT DATE: 20220101
